FAERS Safety Report 13600443 (Version 1)
Quarter: 2017Q2

REPORT INFORMATION
  Report Type: Spontaneous
  Country: US (occurrence: US)
  Receive Date: 20170601
  Receipt Date: 20170601
  Transmission Date: 20170830
  Serious: No
  Sender: FDA-Public Use
  Company Number: US-PFIZER INC-2017240028

PATIENT
  Sex: Male

DRUGS (1)
  1. XELJANZ XR [Suspect]
     Active Substance: TOFACITINIB CITRATE
     Dosage: 11 MG, UNK

REACTIONS (12)
  - Pollakiuria [Unknown]
  - Cough [Unknown]
  - Dyspnoea [Unknown]
  - Grip strength decreased [Unknown]
  - Fatigue [Unknown]
  - Synovitis [Unknown]
  - Dry mouth [Unknown]
  - Headache [Unknown]
  - Anxiety [Unknown]
  - Oedema peripheral [Unknown]
  - Micturition urgency [Unknown]
  - Joint range of motion decreased [Unknown]
